FAERS Safety Report 25445496 (Version 1)
Quarter: 2025Q2

REPORT INFORMATION
  Report Type: Spontaneous
  Country: US (occurrence: US)
  Receive Date: 20250617
  Receipt Date: 20250617
  Transmission Date: 20250717
  Serious: Yes (Death, Life-Threatening)
  Sender: CHEPLAPHARM
  Company Number: US-CHEPLA-2025007437

PATIENT
  Age: 67 Year
  Sex: Male

DRUGS (6)
  1. VALGANCICLOVIR [Suspect]
     Active Substance: VALGANCICLOVIR
     Indication: Prophylaxis
  2. TACROLIMUS [Suspect]
     Active Substance: TACROLIMUS
  3. MYCOPHENOLIC ACID [Suspect]
     Active Substance: MYCOPHENOLIC ACID
     Dosage: MYCOPHENOLATE 1000MG EVERY 12 HOURS
  4. PREDNISONE [Suspect]
     Active Substance: PREDNISONE
  5. SULFAMETHOXAZOLE\TRIMETHOPRIM [Suspect]
     Active Substance: SULFAMETHOXAZOLE\TRIMETHOPRIM
  6. POSACONAZOLE [Suspect]
     Active Substance: POSACONAZOLE
     Indication: Prophylaxis

REACTIONS (8)
  - Transplant rejection [Unknown]
  - West Nile viral infection [Fatal]
  - Encephalitis viral [Fatal]
  - Encephalopathy [Fatal]
  - Coma [Fatal]
  - Paralysis [Fatal]
  - Cryptosporidiosis infection [Unknown]
  - Off label use [Unknown]
